FAERS Safety Report 16237065 (Version 1)
Quarter: 2019Q2

REPORT INFORMATION
  Report Type: Spontaneous
  Country: US (occurrence: US)
  Receive Date: 20190320
  Receipt Date: 20190320
  Transmission Date: 20190711
  Serious: Yes (Disabling, Other)
  Sender: FDA-Public Use
  Company Number: None

PATIENT

DRUGS (1)
  1. LOSARTAN 100MG TAB AUROBINDO PHARM [Suspect]
     Active Substance: LOSARTAN
     Indication: HYPERTENSION
     Dosage: ?          QUANTITY:30 PILLS;?
     Route: 048

REACTIONS (3)
  - Recalled product administered [None]
  - Pollakiuria [None]
  - Headache [None]

NARRATIVE: CASE EVENT DATE: 20190228
